FAERS Safety Report 8347844-1 (Version None)
Quarter: 2012Q2

REPORT INFORMATION
  Report Type: 
  Country: None (occurrence: None)
  Receive Date: 20120509
  Receipt Date: 20120430
  Transmission Date: 20120825
  Serious: Yes (Hospitalization)
  Sender: FDA-Public Use
  Company Number: AT-GLAXOSMITHKLINE-B0800035A

PATIENT
  Age: 3 Year
  Sex: Male

DRUGS (1)
  1. ALBUTEROL SULFATE [Suspect]
     Indication: PRODUCT USED FOR UNKNOWN INDICATION
     Dosage: 125ML SINGLE DOSE
     Route: 048
     Dates: start: 20111228

REACTIONS (4)
  - SINUS TACHYCARDIA [None]
  - HYPOKALAEMIA [None]
  - ACCIDENTAL EXPOSURE [None]
  - HYPERGLYCAEMIA [None]
